FAERS Safety Report 6054716-4 (Version None)
Quarter: 2009Q1

REPORT INFORMATION
  Report Type: 
  Country: None (occurrence: None)
  Receive Date: 20090128
  Receipt Date: 20090122
  Transmission Date: 20090719
  Serious: Yes (Death)
  Sender: FDA-Public Use
  Company Number: FR-BRISTOL-MYERS SQUIBB COMPANY-14483630

PATIENT
  Age: 69 Year
  Sex: Male

DRUGS (10)
  1. GLUCOPHAGE [Suspect]
     Route: 048
     Dates: start: 20020101, end: 20080825
  2. AVANDIA [Suspect]
     Dosage: AVANDIA TABLET.
     Route: 048
     Dates: end: 20080825
  3. TRANDATE [Suspect]
     Dosage: TRANDATE TABLET.
     Route: 048
     Dates: end: 20080825
  4. CORDARONE [Suspect]
     Dosage: CORDARONE TABLET.
     Route: 048
     Dates: end: 20080825
  5. LOXEN [Suspect]
     Dosage: LOXEN (MODIFIED-RELEASE CAPSULE, HARD).
     Route: 048
     Dates: end: 20080825
  6. PREVISCAN [Suspect]
     Route: 048
     Dates: end: 20080825
  7. CRESTOR [Suspect]
     Dosage: CRESTOR (FILM-COATED TABLET).
     Route: 048
  8. LASILIX [Suspect]
     Dosage: LASILIX TABLET.
     Route: 048
  9. ZYLORIC [Suspect]
     Dosage: ZYLORIC TABLET.
     Route: 048
  10. DOMPERIDONE [Suspect]
     Route: 048

REACTIONS (10)
  - ANURIA [None]
  - CARDIO-RESPIRATORY ARREST [None]
  - CARDIOGENIC SHOCK [None]
  - GENERAL PHYSICAL HEALTH DETERIORATION [None]
  - HAEMODIALYSIS [None]
  - LACTIC ACIDOSIS [None]
  - LOSS OF CONSCIOUSNESS [None]
  - OEDEMA PERIPHERAL [None]
  - OVERDOSE [None]
  - TRANSAMINASES INCREASED [None]
